FAERS Safety Report 9548359 (Version 1)
Quarter: 2013Q3

REPORT INFORMATION
  Report Type: Spontaneous
  Country: US (occurrence: None)
  Receive Date: 20130923
  Receipt Date: 20130923
  Transmission Date: 20140515
  Serious: No
  Sender: FDA-Public Use
  Company Number: None

PATIENT
  Age: 61 Year
  Sex: Male
  Weight: 72.58 kg

DRUGS (1)
  1. HUMIRA [Suspect]
     Indication: PSORIASIS
     Dosage: SHOT
     Dates: start: 20130530, end: 20130815

REACTIONS (1)
  - Squamous cell carcinoma [None]
